FAERS Safety Report 21498591 (Version 1)
Quarter: 2022Q4

REPORT INFORMATION
  Report Type: Spontaneous
  Country: US (occurrence: None)
  Receive Date: 20221021
  Receipt Date: 20221021
  Transmission Date: 20230112
  Serious: Yes (Other)
  Sender: FDA-Public Use
  Company Number: None

PATIENT
  Age: 49 Year
  Sex: Male

DRUGS (1)
  1. TOLVAPTAN [Suspect]
     Active Substance: TOLVAPTAN
     Dosage: FREQUENCY : DAILY;?
     Route: 048

REACTIONS (1)
  - Large intestine perforation [None]

NARRATIVE: CASE EVENT DATE: 20221021
